FAERS Safety Report 8591348-8 (Version None)
Quarter: 2012Q3

REPORT INFORMATION
  Report Type: 
  Country: None (occurrence: None)
  Receive Date: 20120730
  Receipt Date: 20120718
  Transmission Date: 20120928
  Serious: Yes (Death)
  Sender: FDA-Public Use
  Company Number: AEUSA201200373

PATIENT
  Age: 88 Year
  Sex: Male
  Weight: 73 kg

DRUGS (1)
  1. PROFILNINE SD [Suspect]
     Indication: COAGULOPATHY
     Dosage: 3700 IU;1X;IV
     Route: 042
     Dates: start: 20120606, end: 20120606

REACTIONS (6)
  - CYANOSIS [None]
  - SUBDURAL HYGROMA [None]
  - APNOEA [None]
  - UNRESPONSIVE TO STIMULI [None]
  - SUBDURAL HAEMATOMA [None]
  - FEMORAL PULSE DECREASED [None]
